FAERS Safety Report 6185274-1 (Version None)
Quarter: 2009Q2

REPORT INFORMATION
  Report Type: 
  Country: None (occurrence: None)
  Receive Date: 20090511
  Receipt Date: 20090424
  Transmission Date: 20091009
  Serious: Yes (Hospitalization)
  Sender: FDA-Public Use
  Company Number: JP-ROCHE-624739

PATIENT
  Sex: Male

DRUGS (4)
  1. CAPECITABINE [Suspect]
     Indication: GASTRIC CANCER
     Dosage: FREQUENCY:TWICE DAILY FOR DAYS 1-14 OF A 3 WEEK CYCLE.TEMPORARILY INTERRUPTED. .
     Route: 048
     Dates: start: 20080808, end: 20080811
  2. CAPECITABINE [Suspect]
     Dosage: FREQUENCY: TWICE DAILY FOR DAYS 1-14 OF A 3-WEEK CYCLE.
     Route: 048
     Dates: start: 20080816
  3. BLINDED BEVACIZUMAB [Suspect]
     Indication: GASTRIC CANCER
     Dosage: DOSAGE FORM:INFUSION, FREQUENCY:TAKEN ON DAY 1 OF 3 WEEK CYCLE.
     Route: 042
     Dates: start: 20080808
  4. CISPLATIN [Suspect]
     Indication: GASTRIC CANCER
     Dosage: REPORTED DOSAGE FORM:INFUSION, FREQUENCY:DAY 1 OF EVERY 3 WEEK CYCLE.
     Route: 042
     Dates: start: 20080808

REACTIONS (1)
  - INTESTINAL OBSTRUCTION [None]
